FAERS Safety Report 4714057-1 (Version None)
Quarter: 2005Q3

REPORT INFORMATION
  Report Type: 
  Country: None (occurrence: None)
  Receive Date: 20050712
  Receipt Date: 20050622
  Transmission Date: 20060218
  Serious: Yes (Hospitalization)
  Sender: FDA-Public Use
  Company Number: 215444

PATIENT
  Age: 29 Year
  Sex: Female

DRUGS (7)
  1. XOLAIR [Suspect]
     Indication: ASTHMA
     Dosage: 2/WEEK, SUBCUTANEOUS
     Route: 058
     Dates: start: 20041106
  2. ANTIBIOTIC (ANTIBIOTICS NOS) [Concomitant]
  3. BRONCHODILATIOR (BRONCODILATOR NOS) [Concomitant]
  4. FLIXOTIDE (FLUTIASONE PROPIONATE) [Concomitant]
  5. FORMOTEROL (FORMOTEROL FUMARATE) [Concomitant]
  6. STEROIDS (INGREDIENTS) (STEROID NOS) [Concomitant]
  7. TIOTROPIUM (TIOTROPIUM BROMIDE) [Concomitant]

REACTIONS (11)
  - ASTHMA [None]
  - CONDITION AGGRAVATED [None]
  - DRUG INEFFECTIVE [None]
  - DRUG RESISTANCE [None]
  - DRUG SPECIFIC ANTIBODY PRESENT [None]
  - DYSPHONIA [None]
  - EOSINOPHILIA [None]
  - HYPOXIA [None]
  - SINUSITIS [None]
  - STAPHYLOCOCCAL INFECTION [None]
  - URTICARIA [None]
